FAERS Safety Report 8818959 (Version 2)
Quarter: 2012Q4

REPORT INFORMATION
  Report Type: 
  Country: IT (occurrence: IT)
  Receive Date: 20121001
  Receipt Date: 20121129
  Transmission Date: 20130627
  Serious: Yes (Hospitalization)
  Sender: FDA-Public Use
  Company Number: PHHY2012IT083790

PATIENT
  Age: 60 Year
  Sex: Female

DRUGS (1)
  1. ZOMETA [Suspect]
     Indication: METASTASES TO BONE
     Route: 042
     Dates: start: 20061010, end: 20120310

REACTIONS (3)
  - Exposed bone in jaw [Not Recovered/Not Resolved]
  - Bone loss [Not Recovered/Not Resolved]
  - Osteosclerosis [Not Recovered/Not Resolved]
